FAERS Safety Report 9246410 (Version 1)
Quarter: 2013Q2

REPORT INFORMATION
  Report Type: Spontaneous
  Country: DE (occurrence: DE)
  Receive Date: 20130422
  Receipt Date: 20130422
  Transmission Date: 20140414
  Serious: Yes (Death, Life-Threatening)
  Sender: FDA-Public Use
  Company Number: GXKR2013DE001549

PATIENT
  Sex: 0

DRUGS (8)
  1. VENLAFAXINE [Suspect]
     Route: 048
     Dates: start: 2010, end: 20121219
  2. VENLAFAXINE [Suspect]
     Dosage: 150 MG, UNK
     Route: 048
     Dates: start: 20121220, end: 20130216
  3. MELPERONE [Suspect]
     Route: 048
     Dates: start: 20130101, end: 20130207
  4. MELPERONE [Suspect]
     Route: 048
     Dates: start: 20130208, end: 20130216
  5. BELOC ZOK [Suspect]
     Route: 048
     Dates: end: 20130216
  6. DOMINAL ^ASTA^ [Suspect]
     Route: 048
     Dates: start: 2010, end: 20130216
  7. RAMIPRIL [Concomitant]
     Route: 048
     Dates: end: 20130216
  8. VIGANTOLETTEN [Concomitant]
     Route: 048
     Dates: end: 20130216

REACTIONS (1)
  - Cardiac arrest [Fatal]
